FAERS Safety Report 13120818 (Version 1)
Quarter: 2017Q1

REPORT INFORMATION
  Report Type: Spontaneous
  Country: FI (occurrence: FI)
  Receive Date: 20170117
  Receipt Date: 20170117
  Transmission Date: 20170428
  Serious: Yes (Hospitalization, Other)
  Sender: FDA-Public Use
  Company Number: FI-ROCHE-1878262

PATIENT
  Age: 34 Year
  Sex: Male

DRUGS (6)
  1. OXALIPLATIN. [Concomitant]
     Active Substance: OXALIPLATIN
     Indication: COLORECTAL ADENOCARCINOMA
     Route: 065
     Dates: start: 2016
  2. AVASTIN [Suspect]
     Active Substance: BEVACIZUMAB
     Indication: COLORECTAL ADENOCARCINOMA
     Route: 042
     Dates: start: 2016, end: 2016
  3. FLUOROURACIL. [Concomitant]
     Active Substance: FLUOROURACIL
  4. PANITUMUMAB [Concomitant]
     Active Substance: PANITUMUMAB
  5. FOLINIC ACID [Concomitant]
     Active Substance: LEUCOVORIN
  6. CAPECITABINE. [Suspect]
     Active Substance: CAPECITABINE
     Indication: COLORECTAL ADENOCARCINOMA
     Route: 048
     Dates: start: 2016

REACTIONS (5)
  - Dyschezia [Not Recovered/Not Resolved]
  - Mucosal haemorrhage [Not Recovered/Not Resolved]
  - Haemorrhage [Recovered/Resolved]
  - Urinary hesitation [Not Recovered/Not Resolved]
  - Frequent bowel movements [Recovered/Resolved]

NARRATIVE: CASE EVENT DATE: 2016
